FAERS Safety Report 5855623-X (Version None)
Quarter: 2008Q3

REPORT INFORMATION
  Report Type: 
  Country: None (occurrence: None)
  Receive Date: 20080821
  Receipt Date: 20080808
  Transmission Date: 20090109
  Serious: Yes (Hospitalization)
  Sender: FDA-Public Use
  Company Number: 237269J08USA

PATIENT
  Age: 31 Year
  Sex: Female
  Weight: 78.4723 kg

DRUGS (2)
  1. REBIF [Suspect]
     Indication: MULTIPLE SCLEROSIS
     Dates: start: 20071204
  2. LEXAPRO [Concomitant]

REACTIONS (2)
  - CHOLELITHIASIS [None]
  - PANCREATIC ENZYMES INCREASED [None]
